FAERS Safety Report 17941185 (Version 1)
Quarter: 2020Q2

REPORT INFORMATION
  Report Type: Spontaneous
  Country: US (occurrence: US)
  Receive Date: 20200624
  Receipt Date: 20200624
  Transmission Date: 20200714
  Serious: No
  Sender: FDA-Public Use
  Company Number: US-PFIZER INC-2020119161

PATIENT
  Age: 68 Year
  Sex: Female
  Weight: 88.9 kg

DRUGS (1)
  1. IBRANCE [Suspect]
     Active Substance: PALBOCICLIB
     Indication: BREAST CANCER METASTATIC
     Dosage: 100 MG, CYCLIC (21 DAYS THEN OFF FOR 7)
     Route: 048
     Dates: end: 2020

REACTIONS (2)
  - Pain [Unknown]
  - Dental caries [Unknown]

NARRATIVE: CASE EVENT DATE: 2020
